FAERS Safety Report 5149845-3 (Version None)
Quarter: 2006Q4

REPORT INFORMATION
  Report Type: 
  Country: None (occurrence: None)
  Receive Date: 20060918
  Receipt Date: 20060110
  Transmission Date: 20070319
  Serious: Yes (Other)
  Sender: FDA-Public Use
  Company Number: US-JNJFOC-20060102921

PATIENT
  Age: 5 Year

DRUGS (1)
  1. TOPAMAX SPRINKLE [Suspect]
     Indication: FRONTAL LOBE EPILEPSY
     Dosage: 15-30 MG

REACTIONS (2)
  - AGGRESSION [None]
  - PARANOIA [None]
